FAERS Safety Report 15420751 (Version 1)
Quarter: 2018Q3

REPORT INFORMATION
  Report Type: Spontaneous
  Country: ES (occurrence: ES)
  Receive Date: 20180924
  Receipt Date: 20180924
  Transmission Date: 20181010
  Serious: Yes (Other)
  Sender: FDA-Public Use
  Company Number: ES-INCYTE CORPORATION-2018IN009685

PATIENT

DRUGS (1)
  1. JAKAVI [Suspect]
     Active Substance: RUXOLITINIB
     Indication: GRAFT VERSUS HOST DISEASE
     Dosage: UNK
     Route: 065

REACTIONS (12)
  - Mental status changes [Unknown]
  - Areflexia [Unknown]
  - Hypotonia [Unknown]
  - Somnolence [Unknown]
  - Speech disorder [Recovered/Resolved]
  - Dysphagia [Recovered/Resolved]
  - Cerebral toxoplasmosis [Recovered/Resolved]
  - Muscular weakness [Unknown]
  - Blindness unilateral [Recovering/Resolving]
  - Disorientation [Unknown]
  - Lymphopenia [Unknown]
  - Guillain-Barre syndrome [Recovering/Resolving]
